FAERS Safety Report 24185633 (Version 1)
Quarter: 2024Q3

REPORT INFORMATION
  Report Type: Spontaneous
  Country: US (occurrence: US)
  Receive Date: 20240807
  Receipt Date: 20240807
  Transmission Date: 20241017
  Serious: No
  Sender: PURDUE
  Company Number: US-PURDUE PHARMA-USA-2024-0311185

PATIENT

DRUGS (1)
  1. OXYCODONE HYDROCHLORIDE [Suspect]
     Active Substance: OXYCODONE HYDROCHLORIDE
     Indication: Pain
     Dosage: UNKNOWN (TAKING MY MAXIMUM ALLOWED DOSE OF 5 A DAY)
     Route: 048

REACTIONS (6)
  - Pain [Unknown]
  - Discomfort [Unknown]
  - Abdominal discomfort [Unknown]
  - Product size issue [Unknown]
  - Drug withdrawal syndrome [Unknown]
  - Inadequate analgesia [Unknown]
